FAERS Safety Report 4380559-3 (Version None)
Quarter: 2004Q2

REPORT INFORMATION
  Report Type: 
  Country: None (occurrence: None)
  Receive Date: 20040618
  Receipt Date: 20030407
  Transmission Date: 20050107
  Serious: Yes (Hospitalization, Disabling, Other)
  Sender: FDA-Public Use
  Company Number: US-MERCK-0304USA00834

PATIENT
  Age: 63 Year
  Sex: Male
  Weight: 111 kg

DRUGS (14)
  1. [THERAPY UNSPECIFIED] [Concomitant]
     Indication: PAIN
     Route: 065
  2. TENORMIN [Concomitant]
     Indication: HYPERTENSION
     Route: 065
     Dates: start: 19830101, end: 20010830
  3. TENORMIN [Concomitant]
     Indication: HEART RATE INCREASED
     Route: 065
     Dates: start: 19830101, end: 20010830
  4. LANOXIN [Concomitant]
     Route: 065
     Dates: start: 20010124, end: 20031210
  5. GLYBURIDE [Concomitant]
     Indication: DIABETES MELLITUS
     Route: 065
     Dates: start: 19930101, end: 20030601
  6. ZESTRIL [Concomitant]
     Indication: DIABETES MELLITUS
     Route: 065
     Dates: start: 19980101, end: 20031210
  7. ZESTRIL [Concomitant]
     Indication: PROPHYLAXIS
     Route: 065
     Dates: start: 19980101, end: 20031210
  8. METFORMIN [Concomitant]
     Route: 065
     Dates: start: 19930101, end: 20030601
  9. VIOXX [Suspect]
     Indication: ARTHRALGIA
     Route: 048
     Dates: start: 20010101, end: 20010301
  10. VIOXX [Suspect]
     Route: 048
     Dates: start: 20010301, end: 20010401
  11. VIOXX [Suspect]
     Route: 048
     Dates: start: 20010407, end: 20010801
  12. VIOXX [Suspect]
     Indication: BACK PAIN
     Route: 048
     Dates: start: 20010101, end: 20010301
  13. VIOXX [Suspect]
     Route: 048
     Dates: start: 20010301, end: 20010401
  14. VIOXX [Suspect]
     Route: 048
     Dates: start: 20010407, end: 20010801

REACTIONS (33)
  - ACUTE MYOCARDIAL INFARCTION [None]
  - ANEURYSM [None]
  - ANGINA UNSTABLE [None]
  - ANXIETY [None]
  - ARTHROPATHY [None]
  - BENIGN PROSTATIC HYPERPLASIA [None]
  - CHEST PAIN [None]
  - CONGESTIVE CARDIOMYOPATHY [None]
  - CORONARY ARTERY ANEURYSM [None]
  - CORONARY ARTERY DISEASE [None]
  - CORONARY ARTERY OCCLUSION [None]
  - CORONARY ARTERY RESTENOSIS [None]
  - CORONARY ARTERY STENOSIS [None]
  - DEPRESSION [None]
  - DIABETIC NEPHROPATHY [None]
  - DIABETIC NEUROPATHY [None]
  - DRUG EFFECT DECREASED [None]
  - DRUG INEFFECTIVE [None]
  - FAECAL OCCULT BLOOD POSITIVE [None]
  - HEPATITIS [None]
  - HERPES ZOSTER [None]
  - HYPOTENSION [None]
  - INJURY [None]
  - INSOMNIA [None]
  - INTERVERTEBRAL DISC DISORDER [None]
  - LIPIDS INCREASED [None]
  - MUSCLE ATROPHY [None]
  - MYOCARDIAL ISCHAEMIA [None]
  - RENAL CYST [None]
  - RENAL MASS [None]
  - SEPSIS [None]
  - SEXUAL DYSFUNCTION [None]
  - VENTRICULAR TACHYCARDIA [None]
